FAERS Safety Report 6004077-1 (Version None)
Quarter: 2008Q4

REPORT INFORMATION
  Report Type: 
  Country: None (occurrence: None)
  Receive Date: 20081216
  Receipt Date: 20081212
  Transmission Date: 20090506
  Serious: Yes (Other)
  Sender: FDA-Public Use
  Company Number: B0550596A

PATIENT
  Sex: Female

DRUGS (1)
  1. LAMICTAL [Suspect]
     Indication: DRUG USE FOR UNKNOWN INDICATION
     Route: 065
     Dates: start: 20080801

REACTIONS (29)
  - ANXIETY [None]
  - ARTHRALGIA [None]
  - BENIGN NEOPLASM [None]
  - CONFUSIONAL STATE [None]
  - CONSTIPATION [None]
  - COORDINATION ABNORMAL [None]
  - DELUSION [None]
  - DEREALISATION [None]
  - DIARRHOEA [None]
  - DISTURBANCE IN ATTENTION [None]
  - DIZZINESS [None]
  - DYSKINESIA [None]
  - HAEMATOCHEZIA [None]
  - HEADACHE [None]
  - HYPERHIDROSIS [None]
  - HYPOACUSIS [None]
  - MANIA [None]
  - MOTION SICKNESS [None]
  - MUSCULOSKELETAL STIFFNESS [None]
  - NAUSEA [None]
  - NIGHTMARE [None]
  - PARAESTHESIA [None]
  - PSYCHOTIC DISORDER [None]
  - RASH [None]
  - SLEEP DISORDER [None]
  - TREMOR [None]
  - TUNNEL VISION [None]
  - VOMITING [None]
  - WEIGHT INCREASED [None]
